FAERS Safety Report 8078003-8 (Version None)
Quarter: 2012Q1

REPORT INFORMATION
  Report Type: 
  Country: None (occurrence: None)
  Receive Date: 20120127
  Receipt Date: 20110209
  Transmission Date: 20120608
  Serious: No
  Sender: FDA-Public Use
  Company Number: US-ABBOTT-10P-163-0682806-00

PATIENT
  Sex: Male
  Weight: 81.72 kg

DRUGS (5)
  1. HUMIRA [Suspect]
     Indication: CROHN'S DISEASE
     Route: 058
     Dates: start: 20091124, end: 20100701
  2. PERCOCET [Concomitant]
     Indication: PAIN
  3. PERCOCET [Concomitant]
     Indication: CROHN'S DISEASE
  4. HUMIRA [Suspect]
     Dates: start: 20101001, end: 20110101
  5. CLONAZEPAM [Concomitant]
     Indication: STRESS

REACTIONS (3)
  - ARTHRITIS [None]
  - CROHN'S DISEASE [None]
  - ARTHRALGIA [None]
